FAERS Safety Report 7362166-3 (Version None)
Quarter: 2011Q1

REPORT INFORMATION
  Report Type: 
  Country: None (occurrence: None)
  Receive Date: 20110309
  Receipt Date: 20110221
  Transmission Date: 20110831
  Serious: Yes (Death)
  Sender: FDA-Public Use
  Company Number: JP-ACCORD-008367

PATIENT
  Sex: Male

DRUGS (1)
  1. IRINOTECAN HCL [Suspect]

REACTIONS (2)
  - GASTRIC CANCER [None]
  - DISEASE PROGRESSION [None]
